FAERS Safety Report 24064406 (Version 1)
Quarter: 2024Q3

REPORT INFORMATION
  Report Type: Spontaneous
  Country: US (occurrence: None)
  Receive Date: 20240708
  Receipt Date: 20240708
  Transmission Date: 20241016
  Serious: No
  Sender: Public
  Company Number: None

PATIENT
  Age: 46 Year
  Sex: Male
  Weight: 97.98 kg

DRUGS (2)
  1. ADBRY [Suspect]
     Active Substance: TRALOKINUMAB-LDRM
     Indication: Dermatitis atopic
     Dosage: INJECT 600MG (2 SYRINGES) SUBCUTANEOUSLY ON DAY 1, THEN 30MG (1 SYRINGES)  EVERY 2 WEEKSAS DIRECTED
     Route: 058
     Dates: start: 202406
  2. ADBRY [Suspect]
     Active Substance: TRALOKINUMAB-LDRM
     Indication: Neurodermatitis

REACTIONS (1)
  - Arthritis infective [None]
